FAERS Safety Report 7568068-1 (Version None)
Quarter: 2011Q2

REPORT INFORMATION
  Report Type: 
  Country: None (occurrence: None)
  Receive Date: 20110623
  Receipt Date: 20110615
  Transmission Date: 20111010
  Serious: Yes (Hospitalization, Other)
  Sender: FDA-Public Use
  Company Number: US-GILEAD-2011-0037953

PATIENT
  Sex: Female

DRUGS (15)
  1. HUMALOG [Concomitant]
     Dates: start: 20110215, end: 20110217
  2. INSULIN LISPRO [Suspect]
     Indication: TYPE 2 DIABETES MELLITUS
     Dates: start: 20110202, end: 20110217
  3. HYDRALAZINE HCL [Concomitant]
     Dates: start: 20110202, end: 20110202
  4. SODIUM CHLORIDE [Concomitant]
     Dates: start: 20110202, end: 20110204
  5. RANEXA [Suspect]
     Indication: ANGINA PECTORIS
     Dates: start: 20110202, end: 20110217
  6. SAXAGLIPTIN [Suspect]
     Indication: TYPE 2 DIABETES MELLITUS
     Dates: start: 20101019
  7. NOVOLOG [Suspect]
     Indication: TYPE 2 DIABETES MELLITUS
     Dates: start: 20090518
  8. NITRATES [Concomitant]
  9. ACTOS [Suspect]
     Indication: TYPE 2 DIABETES MELLITUS
     Dates: start: 20101215, end: 20110211
  10. MORPHINE [Concomitant]
     Dates: start: 20110202, end: 20110203
  11. NITROGLYCERIN [Concomitant]
  12. VOLTAREN [Suspect]
     Dates: end: 20110211
  13. LASIX [Concomitant]
     Dates: start: 20110202, end: 20110204
  14. LANTUS [Suspect]
     Indication: TYPE 2 DIABETES MELLITUS
     Dates: start: 20090601
  15. ASPIRIN [Concomitant]

REACTIONS (7)
  - RENAL FAILURE ACUTE [None]
  - ASTHMA [None]
  - DEPRESSION [None]
  - REFLUX OESOPHAGITIS [None]
  - SUICIDAL IDEATION [None]
  - NON-CARDIAC CHEST PAIN [None]
  - ABDOMINAL PAIN [None]
